FAERS Safety Report 5761955-6 (Version None)
Quarter: 2008Q2

REPORT INFORMATION
  Report Type: 
  Country: None (occurrence: None)
  Receive Date: 20080603
  Receipt Date: 20080523
  Transmission Date: 20081010
  Serious: Yes (Hospitalization)
  Sender: FDA-Public Use
  Company Number: TCI2008A02415

PATIENT
  Age: 59 Year
  Sex: Male

DRUGS (10)
  1. AG-1749 (CODE NOT BROKEN) (LANSOPRAZOLE) (CAPSULES) [Suspect]
     Indication: PROPHYLAXIS AGAINST GASTROINTESTINAL ULCER
     Dosage: AG-1749 15 MG OR GEFARNATE 100 MG (2 TO 1) PER ORAL
     Route: 048
     Dates: start: 20080213, end: 20080522
  2. ACTOS [Concomitant]
  3. BLOPRESS (CANDESARTAN CILEXETIL) (TABLETS) [Concomitant]
  4. BASEN (VOGLIBOSE) (TABLETS) [Concomitant]
  5. ASPIRIN [Concomitant]
  6. GLYBURIDE [Concomitant]
  7. CRESTOR [Concomitant]
  8. NORVASC [Concomitant]
  9. BIOFERMIN (BIOFERMIN) (TABLETS) [Concomitant]
  10. FRANDOL TAPE S (POULTICE OR PATCH) [Concomitant]

REACTIONS (3)
  - EYE HAEMORRHAGE [None]
  - POST PROCEDURAL HAEMORRHAGE [None]
  - RETINAL DETACHMENT [None]
